FAERS Safety Report 21919768 (Version 1)
Quarter: 2023Q1

REPORT INFORMATION
  Report Type: Spontaneous
  Country: US (occurrence: US)
  Receive Date: 20230127
  Receipt Date: 20230127
  Transmission Date: 20230418
  Serious: Yes (Other)
  Sender: FDA-Public Use
  Company Number: US-MYLANLABS-2023M1008423

PATIENT
  Age: 59 Year
  Sex: Male

DRUGS (2)
  1. CIDOFOVIR [Suspect]
     Active Substance: CIDOFOVIR
     Indication: Proctitis herpes
     Dosage: UNK (RECTAL TOPICAL)
     Route: 054
  2. CIDOFOVIR [Suspect]
     Active Substance: CIDOFOVIR
     Indication: Proctitis herpes
     Dosage: UNK
     Route: 042

REACTIONS (3)
  - Hypotony of eye [Recovered/Resolved]
  - Iridocyclitis [Recovered/Resolved]
  - Choroidal detachment [Recovered/Resolved]
